FAERS Safety Report 17328238 (Version 4)
Quarter: 2021Q1

REPORT INFORMATION
  Report Type: Spontaneous
  Country: US (occurrence: US)
  Receive Date: 20200127
  Receipt Date: 20210323
  Transmission Date: 20210419
  Serious: Yes (Hospitalization)
  Sender: FDA-Public Use
  Company Number: US-VIFOR (INTERNATIONAL) INC.-VIT-2020-00458

PATIENT
  Age: 58 Year
  Sex: Female

DRUGS (34)
  1. CALCITRIOL. [Concomitant]
     Active Substance: CALCITRIOL
     Dates: start: 20191209
  2. LEVOTHYROXIN [Concomitant]
     Active Substance: LEVOTHYROXINE
     Dates: start: 20191109, end: 20200108
  3. DEXAMETHASONE PHOSPHATE [Concomitant]
     Active Substance: DEXAMETHASONE PHOSPHATE
  4. VELTASSA [Suspect]
     Active Substance: PATIROMER
     Indication: HYPERKALAEMIA
     Route: 048
     Dates: start: 20170511
  5. SYNTHROID [Concomitant]
     Active Substance: LEVOTHYROXINE SODIUM
     Dates: start: 20050805
  6. CALCITRIOL. [Concomitant]
     Active Substance: CALCITRIOL
     Dates: start: 20190524, end: 20200108
  7. CALCITRIOL. [Concomitant]
     Active Substance: CALCITRIOL
     Dates: start: 20191207
  8. SERTRALINE [Concomitant]
     Active Substance: SERTRALINE HYDROCHLORIDE
     Dates: start: 20200207
  9. SERTRALINE [Concomitant]
     Active Substance: SERTRALINE HYDROCHLORIDE
     Dates: start: 20200309
  10. SODIUM BICARBONATE. [Concomitant]
     Active Substance: SODIUM BICARBONATE
     Dates: start: 20190812
  11. LORATADINE. [Concomitant]
     Active Substance: LORATADINE
     Dates: start: 20190913
  12. AMLODIPINE [Concomitant]
     Active Substance: AMLODIPINE BESYLATE
     Dates: start: 20191013
  13. AMLODIPINE [Concomitant]
     Active Substance: AMLODIPINE BESYLATE
     Dates: start: 20200308
  14. LEVOTHYROXIN [Concomitant]
     Active Substance: LEVOTHYROXINE
     Dates: start: 20191111
  15. CLONIDINE. [Concomitant]
     Active Substance: CLONIDINE
     Dates: start: 20200207
  16. CLONIDINE. [Concomitant]
     Active Substance: CLONIDINE
     Dates: start: 20200210
  17. AMLODIPINE [Concomitant]
     Active Substance: AMLODIPINE BESYLATE
     Dates: start: 20200309
  18. ENALAPRIL [Concomitant]
     Active Substance: ENALAPRIL
     Dates: start: 20191109
  19. GABAPENTIN. [Concomitant]
     Active Substance: GABAPENTIN
     Dates: start: 20191209
  20. CLONIDINE. [Concomitant]
     Active Substance: CLONIDINE
     Dates: start: 20190925
  21. AURYXIA [Concomitant]
     Active Substance: TETRAFERRIC TRICITRATE DECAHYDRATE
     Dates: start: 20191010
  22. TIZANIDINE. [Concomitant]
     Active Substance: TIZANIDINE
     Dates: start: 20191207
  23. ALLOPURINOL. [Concomitant]
     Active Substance: ALLOPURINOL
  24. ESTRADIOL. [Concomitant]
     Active Substance: ESTRADIOL
     Dates: start: 20190124
  25. ESTRADIOL. [Concomitant]
     Active Substance: ESTRADIOL
     Dates: start: 20200312
  26. AMLODIPINE [Concomitant]
     Active Substance: AMLODIPINE BESYLATE
     Dates: start: 20200108
  27. APAP/CODEINE [Concomitant]
     Active Substance: ACETAMINOPHEN\CODEINE PHOSPHATE
     Dosage: 300?30 MG
     Dates: start: 20191209
  28. GABAPENTIN. [Concomitant]
     Active Substance: GABAPENTIN
     Dates: start: 20200120
  29. ZOLOFT [Concomitant]
     Active Substance: SERTRALINE HYDROCHLORIDE
     Dates: start: 20050805
  30. GABAPENTIN. [Concomitant]
     Active Substance: GABAPENTIN
     Dates: start: 20200217
  31. APAP/CODEINE [Concomitant]
     Active Substance: ACETAMINOPHEN\CODEINE PHOSPHATE
     Dosage: 300?30 MG
     Dates: start: 20191207
  32. SERTRALINE [Concomitant]
     Active Substance: SERTRALINE HYDROCHLORIDE
     Dates: start: 20190712
  33. ENALAPRIL [Concomitant]
     Active Substance: ENALAPRIL
     Dates: start: 20200207
  34. COLCHICINE. [Concomitant]
     Active Substance: COLCHICINE

REACTIONS (4)
  - Product dose omission issue [Not Recovered/Not Resolved]
  - Tongue discomfort [Not Recovered/Not Resolved]
  - Parosmia [Unknown]
  - Shoulder operation [Unknown]

NARRATIVE: CASE EVENT DATE: 20191210
